FAERS Safety Report 8163638-4 (Version None)
Quarter: 2012Q1

REPORT INFORMATION
  Report Type: 
  Country: None (occurrence: None)
  Receive Date: 20120103
  Receipt Date: 20111017
  Transmission Date: 20120608
  Serious: No
  Sender: FDA-Public Use
  Company Number: AE-2011-002424

PATIENT
  Age: 43 Year
  Sex: Female
  Weight: 85.7298 kg

DRUGS (8)
  1. INCIVEK [Suspect]
     Dosage: 2250 MG (750 MG, 3 IN 1 D),ORAL
     Route: 048
     Dates: start: 20110826
  2. SEROQUEL [Concomitant]
  3. WELLBUTRIN [Concomitant]
  4. NAPROXEN [Concomitant]
  5. PEGINTERFERON (PEGINTERFERON ALFA-2A) [Concomitant]
  6. BUSPAR [Concomitant]
  7. RIBAVIRIN [Concomitant]
  8. NEURONTIN [Concomitant]

REACTIONS (4)
  - PRURITUS GENERALISED [None]
  - DIARRHOEA [None]
  - ANORECTAL DISCOMFORT [None]
  - ANAL PRURITUS [None]
